FAERS Safety Report 7515917-9 (Version None)
Quarter: 2011Q2

REPORT INFORMATION
  Report Type: 
  Country: None (occurrence: None)
  Receive Date: 20110601
  Receipt Date: 20110527
  Transmission Date: 20111010
  Serious: No
  Sender: FDA-Public Use
  Company Number: US-PFIZER INC-2011115464

PATIENT
  Sex: Male
  Weight: 77.098 kg

DRUGS (7)
  1. PAROXETINE [Concomitant]
     Dosage: 25 MG DAILY
  2. ZOLPIDEM [Concomitant]
     Indication: SLEEP DISORDER
     Dosage: 10 MG DAILY
  3. TRAMADOL [Concomitant]
     Dosage: 50 MG, EVERY SIX HOURS
  4. LYRICA [Concomitant]
     Indication: PAIN
     Dosage: 50 MG DAILY
  5. IBUPROFEN [Concomitant]
     Indication: PAIN
     Dosage: 400 MG, 4X/DAY
  6. TRAZODONE [Concomitant]
     Dosage: 100 MG DAILY
     Route: 048
  7. PRISTIQ [Suspect]
     Dosage: 100 MG DAILY
     Dates: start: 20110425

REACTIONS (1)
  - DRUG SCREEN POSITIVE [None]
